FAERS Safety Report 9745667 (Version 1)
Quarter: 2013Q4

REPORT INFORMATION
  Report Type: Spontaneous
  Country: US (occurrence: None)
  Receive Date: 20131206
  Receipt Date: 20131206
  Transmission Date: 20140711
  Serious: Yes (Hospitalization)
  Sender: FDA-Public Use
  Company Number: None

PATIENT
  Age: 70 Year
  Sex: Female
  Weight: 54.1 kg

DRUGS (3)
  1. CARBOPLATIN [Suspect]
  2. PACLITAXEL [Suspect]
  3. SIMVASTATIN [Concomitant]

REACTIONS (7)
  - Cerebrovascular accident [None]
  - Rhabdomyolysis [None]
  - Thrombocytopenia [None]
  - Urinary tract infection [None]
  - Troponin I increased [None]
  - Anaemia [None]
  - Arrhythmia [None]
